FAERS Safety Report 24133375 (Version 3)
Quarter: 2024Q3

REPORT INFORMATION
  Report Type: Spontaneous
  Country: JP (occurrence: JP)
  Receive Date: 20240724
  Receipt Date: 20240913
  Transmission Date: 20241016
  Serious: Yes (Hospitalization, Other)
  Sender: ALEXION PHARMACEUTICALS
  Company Number: JP-AstraZeneca-CH-00648379A

PATIENT
  Age: 6 Decade
  Sex: Male
  Weight: 60 kg

DRUGS (2)
  1. ULTOMIRIS [Suspect]
     Active Substance: RAVULIZUMAB-CWVZ
     Indication: Atypical haemolytic uraemic syndrome
     Dosage: 2700 MILLIGRAM, SINGLE
     Route: 042
     Dates: start: 20240415, end: 20240415
  2. ULTOMIRIS [Suspect]
     Active Substance: RAVULIZUMAB-CWVZ
     Dosage: 3300 MILLIGRAM
     Route: 042
     Dates: start: 20240429

REACTIONS (5)
  - Nasopharyngitis [Recovered/Resolved]
  - Platelet count decreased [Unknown]
  - Meningism [Recovered/Resolved]
  - Meningitis [Recovered/Resolved]
  - Meningococcal infection [Recovered/Resolved]
